FAERS Safety Report 16793969 (Version 1)
Quarter: 2019Q3

REPORT INFORMATION
  Report Type: Spontaneous
  Country: JP (occurrence: JP)
  Receive Date: 20190911
  Receipt Date: 20190911
  Transmission Date: 20191005
  Serious: Yes (Other)
  Sender: FDA-Public Use
  Company Number: JP-SAKK-2019SA250636AA

PATIENT
  Age: 30 Year
  Sex: Male

DRUGS (1)
  1. DUPIXENT [Suspect]
     Active Substance: DUPILUMAB
     Indication: DERMATITIS ATOPIC
     Dosage: DAILY DOSE: 300 MG
     Route: 058
     Dates: start: 201902, end: 20190906

REACTIONS (6)
  - Presyncope [Recovered/Resolved]
  - Subcutaneous haematoma [Recovered/Resolved]
  - Stress [Unknown]
  - Product use issue [Unknown]
  - Loss of consciousness [Recovered/Resolved]
  - Fall [Recovered/Resolved]

NARRATIVE: CASE EVENT DATE: 20190823
